FAERS Safety Report 9230508 (Version 2)
Quarter: 2013Q3

REPORT INFORMATION
  Report Type: Spontaneous
  Country: FR (occurrence: FR)
  Receive Date: 20130415
  Receipt Date: 20130715
  Transmission Date: 20140515
  Serious: Yes (Hospitalization)
  Sender: FDA-Public Use
  Company Number: FR-PFIZER INC-2013110981

PATIENT
  Age: 36 Year
  Sex: Female

DRUGS (1)
  1. TRINORDIOL [Suspect]
     Indication: ORAL CONTRACEPTION
     Dosage: UNK
     Route: 048
     Dates: end: 201210

REACTIONS (2)
  - Ischaemic stroke [Recovered/Resolved with Sequelae]
  - Myocarditis [Unknown]
